FAERS Safety Report 23577965 (Version 2)
Quarter: 2024Q4

REPORT INFORMATION
  Report Type: Report from Study
  Country: CA (occurrence: CA)
  Receive Date: 20240228
  Receipt Date: 20241002
  Transmission Date: 20250115
  Serious: Yes (Hospitalization, Other)
  Sender: GLAXOSMITHKLINE
  Company Number: CA-GLAXOSMITHKLINE-CA2024024280

PATIENT

DRUGS (7)
  1. MEPOLIZUMAB [Suspect]
     Active Substance: MEPOLIZUMAB
     Indication: Asthma
     Dosage: 100 MG, Q4W
     Route: 058
     Dates: start: 20200729
  2. MEPOLIZUMAB [Suspect]
     Active Substance: MEPOLIZUMAB
     Indication: Eosinophilic granulomatosis with polyangiitis
  3. BREO ELLIPTA [Concomitant]
     Active Substance: FLUTICASONE FUROATE\VILANTEROL TRIFENATATE
     Indication: Product used for unknown indication
     Dosage: UNK, QD, 200/25 MCG 1-2 PUFF
  4. VENTOLIN [Concomitant]
     Active Substance: ALBUTEROL SULFATE
     Indication: Product used for unknown indication
     Dosage: 2 PUFF(S) AS NEEDED
  5. ZENHALE [Concomitant]
     Active Substance: FORMOTEROL FUMARATE\MOMETASONE FUROATE
     Indication: Product used for unknown indication
     Dosage: 2 PUFF(S), BID, 200/5MCG
  6. PULMICORT TURBUHALER [Concomitant]
     Active Substance: BUDESONIDE
     Indication: Product used for unknown indication
     Dosage: UNK
  7. MEDROL [Concomitant]
     Active Substance: METHYLPREDNISOLONE
     Indication: Product used for unknown indication
     Dosage: 4 MG

REACTIONS (16)
  - Coronavirus infection [Recovered/Resolved]
  - Hepatitis [Not Recovered/Not Resolved]
  - Cholecystitis [Not Recovered/Not Resolved]
  - Pancreatitis [Not Recovered/Not Resolved]
  - Seizure [Unknown]
  - Paralysis [Unknown]
  - Cerebrovascular accident [Unknown]
  - Productive cough [Unknown]
  - Chest discomfort [Unknown]
  - Wheezing [Unknown]
  - Asthma [Unknown]
  - Inflammation [Unknown]
  - Productive cough [Unknown]
  - Chest discomfort [Unknown]
  - Aphasia [Unknown]
  - Incorrect dose administered [Unknown]
